FAERS Safety Report 15755264 (Version 1)
Quarter: 2018Q4

REPORT INFORMATION
  Report Type: Spontaneous
  Country: CN (occurrence: CN)
  Receive Date: 20181224
  Receipt Date: 20181224
  Transmission Date: 20190205
  Serious: Yes (Hospitalization, Other)
  Sender: FDA-Public Use
  Company Number: CN-ROCHE-2232262

PATIENT
  Age: 21 Year
  Sex: Male

DRUGS (1)
  1. TAMIFLU [Suspect]
     Active Substance: OSELTAMIVIR PHOSPHATE
     Indication: INFLUENZA
     Route: 048
     Dates: start: 20180114, end: 20180116

REACTIONS (2)
  - Dermatitis allergic [Recovering/Resolving]
  - Viral myocarditis [Unknown]

NARRATIVE: CASE EVENT DATE: 20180115
